FAERS Safety Report 19905876 (Version 3)
Quarter: 2021Q4

REPORT INFORMATION
  Report Type: Spontaneous
  Country: IT (occurrence: IT)
  Receive Date: 20211001
  Receipt Date: 20211115
  Transmission Date: 20220304
  Serious: Yes (Other)
  Sender: FDA-Public Use
  Company Number: None

PATIENT
  Age: 23 Year
  Sex: Female

DRUGS (3)
  1. FILGRASTIM [Suspect]
     Active Substance: FILGRASTIM
     Indication: Colony stimulating factor therapy
     Dosage: 30 MIU, 1X/DAY
     Route: 058
     Dates: start: 20210808, end: 20210813
  2. EPIRUBICIN HYDROCHLORIDE [Concomitant]
     Active Substance: EPIRUBICIN HYDROCHLORIDE
     Indication: Fibrosarcoma
     Dosage: 56 MG
     Route: 042
     Dates: start: 20210804, end: 20210805
  3. IFOSFAMIDE [Concomitant]
     Active Substance: IFOSFAMIDE
     Indication: Fibrosarcoma
     Dosage: 4800 MG
     Route: 042
     Dates: start: 20210804, end: 20210805

REACTIONS (2)
  - Neutrophil count decreased [Recovered/Resolved]
  - Drug ineffective [Recovered/Resolved]

NARRATIVE: CASE EVENT DATE: 20210813
